FAERS Safety Report 18994686 (Version 1)
Quarter: 2021Q1

REPORT INFORMATION
  Report Type: Spontaneous
  Country: US (occurrence: US)
  Receive Date: 20210311
  Receipt Date: 20210311
  Transmission Date: 20210420
  Serious: No
  Sender: FDA-Public Use
  Company Number: US-BEH-2021129135

PATIENT
  Sex: Female

DRUGS (4)
  1. BLOOD PLASMA [Concomitant]
     Active Substance: HUMAN PLASMA
     Dosage: UNK
     Route: 065
     Dates: start: 2021, end: 2021
  2. BLOOD PLASMA [Concomitant]
     Active Substance: HUMAN PLASMA
     Dosage: UNK
  3. HIZENTRA [Suspect]
     Active Substance: HUMAN IMMUNOGLOBULIN G
     Indication: HYPOGAMMAGLOBULINAEMIA
     Dosage: 26 GRAM, QOW, EVERY 2 WEEKS
     Route: 058
     Dates: start: 20170215
  4. HIZENTRA [Suspect]
     Active Substance: HUMAN IMMUNOGLOBULIN G
     Dosage: 26 GRAM, QOW, EVERY 2 WEEKS
     Route: 058
     Dates: start: 202008

REACTIONS (3)
  - Malaise [Unknown]
  - Insurance issue [Unknown]
  - Ill-defined disorder [Unknown]
